FAERS Safety Report 18046414 (Version 1)
Quarter: 2020Q3

REPORT INFORMATION
  Report Type: Spontaneous
  Country: US (occurrence: US)
  Receive Date: 20200720
  Receipt Date: 20200720
  Transmission Date: 20201103
  Serious: No
  Sender: FDA-Public Use
  Company Number: US-PFIZER INC-2020275989

PATIENT
  Age: 50 Year
  Sex: Female

DRUGS (1)
  1. INLYTA [Suspect]
     Active Substance: AXITINIB
     Dosage: UNK
     Dates: start: 20200618

REACTIONS (8)
  - Visual impairment [Unknown]
  - Stomatitis [Unknown]
  - Diarrhoea [Unknown]
  - Gait disturbance [Unknown]
  - Blood pressure increased [Unknown]
  - Insomnia [Unknown]
  - Pain in extremity [Unknown]
  - Chest pain [Unknown]
